FAERS Safety Report 8297410-1 (Version None)
Quarter: 2012Q2

REPORT INFORMATION
  Report Type: 
  Country: None (occurrence: None)
  Receive Date: 20120419
  Receipt Date: 20120416
  Transmission Date: 20120825
  Serious: Yes (Other)
  Sender: FDA-Public Use
  Company Number: BR-PFIZER INC-2012094976

PATIENT
  Age: 59 Year
  Sex: Female

DRUGS (4)
  1. LIPITOR [Suspect]
     Dosage: 3 TIMES PER WEEK
     Route: 048
     Dates: start: 20090101
  2. LIPITOR [Suspect]
     Dosage: UNK
  3. ATENOLOL [Concomitant]
     Indication: HYPERTENSION
     Dosage: 50 MG, 1X/DAY
     Route: 048
     Dates: start: 20040101
  4. LIPITOR [Suspect]
     Indication: BLOOD CHOLESTEROL
     Dosage: 10 MG, 1X/DAY
     Route: 048
     Dates: end: 20090101

REACTIONS (4)
  - THYROID DISORDER [None]
  - NEPHROLITHIASIS [None]
  - BLOOD CHOLESTEROL INCREASED [None]
  - INCORRECT DOSE ADMINISTERED [None]
